FAERS Safety Report 12759088 (Version 1)
Quarter: 2016Q3

REPORT INFORMATION
  Report Type: Spontaneous
  Country: GB (occurrence: GB)
  Receive Date: 20160919
  Receipt Date: 20160919
  Transmission Date: 20161109
  Serious: Yes (Other)
  Sender: FDA-Public Use
  Company Number: GB-PFIZER INC-2016433280

PATIENT
  Age: 22 Year
  Sex: Female
  Weight: 73 kg

DRUGS (3)
  1. IBUPROFEN. [Suspect]
     Active Substance: IBUPROFEN
     Dosage: UNK
     Dates: start: 20160906
  2. TERBINAFINE. [Concomitant]
     Active Substance: TERBINAFINE
     Dosage: 1 DF, 1X/DAY
     Dates: start: 20160211, end: 20160624
  3. DOUBLEBASE [Concomitant]
     Active Substance: ISOPROPYL MYRISTATE\PARAFFIN
     Dosage: UNK, AS NEEDED
     Dates: start: 20120525

REACTIONS (1)
  - Gastritis [Recovered/Resolved]

NARRATIVE: CASE EVENT DATE: 20160906
